FAERS Safety Report 5367869-8 (Version None)
Quarter: 2007Q2

REPORT INFORMATION
  Report Type: 
  Country: None (occurrence: None)
  Receive Date: 20070622
  Receipt Date: 20070614
  Transmission Date: 20071010
  Serious: Yes (Hospitalization)
  Sender: FDA-Public Use
  Company Number: US-AMGEN-STX229677

PATIENT
  Sex: Female

DRUGS (3)
  1. ENBREL [Suspect]
     Indication: PSORIATIC ARTHROPATHY
     Route: 058
     Dates: start: 19990801
  2. UNKNOWN [Concomitant]
     Route: 048
  3. COUMADIN [Concomitant]
     Dates: start: 20000401

REACTIONS (4)
  - ANIMAL BITE [None]
  - INFLAMMATION [None]
  - INJECTION SITE IRRITATION [None]
  - PULMONARY EMBOLISM [None]
